FAERS Safety Report 20132122 (Version 3)
Quarter: 2023Q4

REPORT INFORMATION
  Report Type: Spontaneous
  Country: US (occurrence: US)
  Receive Date: 20211130
  Receipt Date: 20231012
  Transmission Date: 20240110
  Serious: Yes (Other)
  Sender: FDA-Public Use
  Company Number: US-GILEAD-2021-0557167

PATIENT
  Age: 52 Year
  Sex: Female
  Weight: 59.41 kg

DRUGS (19)
  1. ATRIPLA [Suspect]
     Active Substance: EFAVIRENZ\EMTRICITABINE\TENOFOVIR DISOPROXIL FUMARATE
     Indication: HIV infection
     Dosage: UNK
     Route: 048
     Dates: start: 2010
  2. ATRIPLA [Suspect]
     Active Substance: EFAVIRENZ\EMTRICITABINE\TENOFOVIR DISOPROXIL FUMARATE
     Dosage: UNK
     Route: 048
     Dates: start: 201004, end: 201301
  3. ATRIPLA [Suspect]
     Active Substance: EFAVIRENZ\EMTRICITABINE\TENOFOVIR DISOPROXIL FUMARATE
     Dosage: UNK
     Route: 048
     Dates: start: 201003, end: 201301
  4. TRIUMEQ [Concomitant]
     Active Substance: ABACAVIR SULFATE\DOLUTEGRAVIR SODIUM\LAMIVUDINE
  5. CLONAZEPAM [Concomitant]
     Active Substance: CLONAZEPAM
  6. COENZYME Q10 [Concomitant]
     Active Substance: DIETARY SUPPLEMENT\UBIDECARENONE
  7. INOSITOL NIACINATE [Concomitant]
     Active Substance: INOSITOL NIACINATE
  8. LOVAZA [Concomitant]
     Active Substance: OMEGA-3-ACID ETHYL ESTERS
  9. METAMUCIL [Concomitant]
     Active Substance: PLANTAGO SEED
  10. OMEPRAZOLE [Concomitant]
     Active Substance: OMEPRAZOLE
  11. PROZAC [Concomitant]
     Active Substance: FLUOXETINE HYDROCHLORIDE
  12. ROSUVASTATIN [Concomitant]
     Active Substance: ROSUVASTATIN
  13. VIIBRYD [Concomitant]
     Active Substance: VILAZODONE HYDROCHLORIDE
  14. VITAMIN C [Concomitant]
     Active Substance: ASCORBIC ACID
  15. EPZICOM [Concomitant]
     Active Substance: ABACAVIR SULFATE\LAMIVUDINE
  16. SUSTIVA [Concomitant]
     Active Substance: EFAVIRENZ
  17. TIVICAY [Concomitant]
     Active Substance: DOLUTEGRAVIR SODIUM
  18. CLONAZEPAM [Concomitant]
     Active Substance: CLONAZEPAM
  19. COENZYME Q10 [Concomitant]
     Active Substance: DIETARY SUPPLEMENT\UBIDECARENONE

REACTIONS (14)
  - Osteoporosis [Not Recovered/Not Resolved]
  - Bone demineralisation [Unknown]
  - Pain [Not Recovered/Not Resolved]
  - Emotional distress [Not Recovered/Not Resolved]
  - Anxiety [Not Recovered/Not Resolved]
  - Anhedonia [Not Recovered/Not Resolved]
  - Osteopenia [Not Recovered/Not Resolved]
  - Foot fracture [Not Recovered/Not Resolved]
  - Neck pain [Unknown]
  - Mobility decreased [Unknown]
  - Spinal pain [Unknown]
  - Back pain [Unknown]
  - Limb injury [Unknown]
  - Depression [Unknown]

NARRATIVE: CASE EVENT DATE: 20121126
